FAERS Safety Report 10560779 (Version 2)
Quarter: 2014Q4

REPORT INFORMATION
  Report Type: Spontaneous
  Country: ES (occurrence: ES)
  Receive Date: 20141103
  Receipt Date: 20141201
  Transmission Date: 20150529
  Serious: Yes (Hospitalization, Other)
  Sender: FDA-Public Use
  Company Number: ES-PFIZER INC-2014302709

PATIENT
  Age: 76 Year
  Sex: Female

DRUGS (6)
  1. SEGURIL [Interacting]
     Active Substance: FUROSEMIDE
     Dosage: 40 MG, 1X/DAY
     Route: 048
     Dates: start: 20110902, end: 20140104
  2. MICARDIS [Interacting]
     Active Substance: TELMISARTAN
     Indication: CARDIOMYOPATHY
     Dosage: UNK
     Route: 048
     Dates: start: 20130827, end: 20140104
  3. EMCONCOR [Concomitant]
     Active Substance: BISOPROLOL FUMARATE
     Dosage: 5 MG, 2X/DAY
     Route: 048
     Dates: start: 20130401, end: 20140104
  4. SINTROM [Concomitant]
     Active Substance: ACENOCOUMAROL
     Dosage: UNK
     Route: 048
     Dates: start: 2009
  5. NORFLOXACIN [Concomitant]
     Active Substance: NORFLOXACIN
     Dosage: UNK
     Route: 048
     Dates: start: 20131224
  6. ALDACTONE [Suspect]
     Active Substance: SPIRONOLACTONE
     Indication: CARDIOMYOPATHY
     Dosage: 100 MG, 1X/DAY
     Route: 048
     Dates: start: 20110902, end: 20140104

REACTIONS (9)
  - Diverticulum intestinal [Unknown]
  - Haemorrhoids [Unknown]
  - Asthenia [Recovered/Resolved]
  - Drug interaction [Recovered/Resolved]
  - Lower limb fracture [Unknown]
  - Hyponatraemia [Recovered/Resolved]
  - Hyperkalaemia [Recovered/Resolved]
  - Portal vein thrombosis [Unknown]
  - Angiodysplasia [Unknown]

NARRATIVE: CASE EVENT DATE: 201208
